FAERS Safety Report 8837760 (Version 2)
Quarter: 2012Q4

REPORT INFORMATION
  Report Type: 
  Country: US (occurrence: US)
  Receive Date: 20121012
  Receipt Date: 20121119
  Transmission Date: 20130627
  Serious: Yes (Other)
  Sender: FDA-Public Use
  Company Number: US-PERRIGO-12US008700

PATIENT
  Age: 50 None
  Sex: Female
  Weight: 81.63 kg

DRUGS (12)
  1. SALINE NASAL SPRAY 0.65% 312 [Suspect]
     Indication: SINUS CONGESTION
     Dosage: 1 spray in each nostril, qd
     Route: 045
     Dates: start: 20121001, end: 20121002
  2. SALINE NASAL SPRAY 0.65% 312 [Suspect]
     Dosage: 1 spray in each nostril, qd
     Route: 045
     Dates: start: 201001, end: 20120930
  3. NEXIUM [Concomitant]
     Indication: GASTROOESOPHAGEAL REFLUX DISEASE
     Dosage: UNK, UNK
     Route: 048
     Dates: start: 2009
  4. FLEXERIL [Concomitant]
     Indication: FIBROMYALGIA
     Dosage: UNK, UNK
     Route: 048
     Dates: start: 2008
  5. FLONASE [Concomitant]
     Indication: HYPERSENSITIVITY
     Dosage: UNK, UNK
     Route: 045
     Dates: start: 2010
  6. TRAZODONE [Concomitant]
     Indication: INSOMNIA
     Dosage: UNK, UNK
     Route: 048
     Dates: start: 2007
  7. PHENERGAN [Concomitant]
     Indication: NAUSEA
     Dosage: UNK, PRN
     Route: 065
     Dates: start: 2007
  8. PRAVASTATIN [Concomitant]
     Indication: BLOOD CHOLESTEROL INCREASED
     Dosage: UNK, UNK
     Route: 048
     Dates: start: 2011
  9. HCTZ [Concomitant]
     Indication: HYPERTENSION
     Dosage: UNK, UNK
     Route: 048
     Dates: start: 2007
  10. SINGULAIR [Concomitant]
     Indication: HYPERSENSITIVITY
     Dosage: UNK, UNK
     Route: 048
     Dates: start: 2009
  11. SINGULAIR [Concomitant]
     Indication: ASTHMA
  12. TEKTURNA [Concomitant]
     Indication: HYPERTENSION
     Dosage: UNK, UNK
     Route: 048
     Dates: start: 2007

REACTIONS (4)
  - Dizziness [Recovered/Resolved]
  - Fall [Recovered/Resolved]
  - Injury [Recovered/Resolved]
  - Underdose [Unknown]
